FAERS Safety Report 15068583 (Version 1)
Quarter: 2018Q2

REPORT INFORMATION
  Report Type: Spontaneous
  Country: US (occurrence: US)
  Receive Date: 20180626
  Receipt Date: 20180626
  Transmission Date: 20180711
  Serious: No
  Sender: FDA-Public Use
  Company Number: US-AMGEN-USASP2017132069

PATIENT
  Age: 73 Year
  Sex: Female

DRUGS (3)
  1. DECADRON [Concomitant]
     Active Substance: DEXAMETHASONE
     Dosage: UNK
  2. NEULASTA [Suspect]
     Active Substance: PEGFILGRASTIM
     Indication: BREAST CANCER
     Dosage: 6 MG, UNK
     Route: 065
  3. BENADRYL [Concomitant]
     Active Substance: DIPHENHYDRAMINE HYDROCHLORIDE
     Dosage: UNK

REACTIONS (3)
  - Heart rate increased [Recovered/Resolved]
  - Bone pain [Recovered/Resolved]
  - Flushing [Recovered/Resolved]
